FAERS Safety Report 12488584 (Version 1)
Quarter: 2016Q2

REPORT INFORMATION
  Report Type: Spontaneous
  Country: GB (occurrence: GB)
  Receive Date: 20160622
  Receipt Date: 20160622
  Transmission Date: 20160815
  Serious: Yes (Disabling, Other)
  Sender: FDA-Public Use
  Company Number: GB-TEVA-668575ACC

PATIENT
  Age: 90 Year
  Sex: Female
  Weight: 66.8 kg

DRUGS (10)
  1. FOLIC ACID. [Concomitant]
     Active Substance: FOLIC ACID
  2. RAMIPRIL. [Concomitant]
     Active Substance: RAMIPRIL
  3. AMLODIPINE [Suspect]
     Active Substance: AMLODIPINE BESYLATE
  4. ELIQUIS [Suspect]
     Active Substance: APIXABAN
     Indication: ATRIAL FIBRILLATION
     Dosage: UNKNOWN
     Route: 048
     Dates: start: 201605
  5. LANSOPRAZOLE. [Concomitant]
     Active Substance: LANSOPRAZOLE
  6. SIMVASTATIN. [Concomitant]
     Active Substance: SIMVASTATIN
  7. AMLODIPINE [Suspect]
     Active Substance: AMLODIPINE BESYLATE
     Dosage: 10 MILLIGRAM DAILY;
  8. MONOMIL XL [Concomitant]
     Active Substance: ISOSORBIDE MONONITRATE
  9. COCODAMOL [Concomitant]
     Active Substance: ACETAMINOPHEN\CODEINE PHOSPHATE
  10. GABAPENTIN. [Concomitant]
     Active Substance: GABAPENTIN

REACTIONS (2)
  - Dyspnoea [Not Recovered/Not Resolved]
  - Lethargy [Not Recovered/Not Resolved]

NARRATIVE: CASE EVENT DATE: 20160526
